FAERS Safety Report 5176423-2 (Version None)
Quarter: 2006Q4

REPORT INFORMATION
  Report Type: 
  Country: None (occurrence: None)
  Receive Date: 20061215
  Receipt Date: 20061204
  Transmission Date: 20070319
  Serious: Yes (Death, Hospitalization)
  Sender: FDA-Public Use
  Company Number: TW-ROCHE-473373

PATIENT
  Age: 30 Year
  Sex: Male
  Weight: 47.4 kg

DRUGS (7)
  1. CAPECITABINE [Suspect]
     Indication: HEPATIC NEOPLASM MALIGNANT
     Dosage: 1600 MG/M2 ON DAYS 1-14 EVERY 3 WEEKS
     Route: 048
     Dates: start: 20060822, end: 20060911
  2. BEVACIZUMAB [Suspect]
     Indication: HEPATIC NEOPLASM MALIGNANT
     Route: 042
     Dates: start: 20060822, end: 20060911
  3. METOCLOPRAMIDE HCL [Concomitant]
     Dates: start: 20060908, end: 20060911
  4. PROHEPARUM [Concomitant]
     Dates: start: 20060908, end: 20060930
  5. SPIRONOLACTONE [Concomitant]
     Dates: start: 20060908, end: 20060911
  6. ALPRAZOLAM [Concomitant]
     Dates: start: 20060908, end: 20060911
  7. SIMETHICONE [Concomitant]
     Dates: start: 20060908, end: 20060915

REACTIONS (3)
  - HEPATIC FAILURE [None]
  - HEPATITIS B [None]
  - HEPATITIS FULMINANT [None]
